FAERS Safety Report 24706331 (Version 4)
Quarter: 2025Q1

REPORT INFORMATION
  Report Type: Spontaneous
  Country: US (occurrence: US)
  Receive Date: 20241206
  Receipt Date: 20250219
  Transmission Date: 20250409
  Serious: Yes (Other)
  Sender: EISAI
  Company Number: US-Eisai-EC-2024-179321

PATIENT
  Age: 69 Year
  Sex: Female

DRUGS (2)
  1. LEQEMBI [Suspect]
     Active Substance: LECANEMAB-IRMB
     Indication: Dementia Alzheimer^s type
     Dates: start: 20240521, end: 202410
  2. LEQEMBI [Suspect]
     Active Substance: LECANEMAB-IRMB
     Dates: start: 20241112, end: 20241112

REACTIONS (1)
  - Amyloid related imaging abnormality-oedema/effusion [Recovering/Resolving]

NARRATIVE: CASE EVENT DATE: 20241119
